FAERS Safety Report 14205067 (Version 2)
Quarter: 2017Q4

REPORT INFORMATION
  Report Type: Report from Study
  Country: GR (occurrence: GR)
  Receive Date: 20171120
  Receipt Date: 20171201
  Transmission Date: 20180321
  Serious: Yes (Other)
  Sender: FDA-Public Use
  Company Number: GR-GILEAD-2017-0305583

PATIENT
  Age: 56 Year
  Sex: Male
  Weight: 80 kg

DRUGS (2)
  1. TENOFOVIR DISOPROXIL FUMARATE. [Suspect]
     Active Substance: TENOFOVIR DISOPROXIL FUMARATE
     Indication: CHRONIC HEPATITIS B
     Dosage: 245 MG, UNK
     Route: 048
     Dates: start: 20120601
  2. TENOFOVIR DISOPROXIL FUMARATE. [Suspect]
     Active Substance: TENOFOVIR DISOPROXIL FUMARATE
     Dosage: 245 MG, UNK
     Route: 048
     Dates: start: 20120601

REACTIONS (1)
  - Osteoporosis [Not Recovered/Not Resolved]

NARRATIVE: CASE EVENT DATE: 20151107
